FAERS Safety Report 24973445 (Version 2)
Quarter: 2025Q2

REPORT INFORMATION
  Report Type: Spontaneous
  Country: JP (occurrence: JP)
  Receive Date: 20250216
  Receipt Date: 20250401
  Transmission Date: 20250716
  Serious: Yes (Death)
  Sender: AMGEN
  Company Number: JP-KYOWAKIRIN-2025KK002011

PATIENT
  Age: 10 Decade
  Sex: Female

DRUGS (1)
  1. DARBEPOETIN ALFA [Suspect]
     Active Substance: DARBEPOETIN ALFA
     Indication: Product used for unknown indication
     Route: 065

REACTIONS (1)
  - Marasmus [Fatal]
